FAERS Safety Report 4417597-8 (Version None)
Quarter: 2004Q2

REPORT INFORMATION
  Report Type: 
  Country: None (occurrence: None)
  Receive Date: 20040625
  Receipt Date: 20040506
  Transmission Date: 20050107
  Serious: No
  Sender: FDA-Public Use
  Company Number: 206360

PATIENT
  Age: 61 Year
  Sex: Male
  Weight: 67.6 kg

DRUGS (15)
  1. AVASTIN [Suspect]
     Indication: COLORECTAL CANCER METASTATIC
     Dosage: 340 MG, INTRAVENOUS
     Route: 042
     Dates: start: 20040412
  2. OXALIPLATIN [Concomitant]
  3. LEUCOVORIN CALCIUM [Concomitant]
  4. TIMOLOL (TIMOLOL MALEATE) [Concomitant]
  5. ALPHAGAN [Concomitant]
  6. TRAVATAN (TRAVOPROST) [Concomitant]
  7. NORVASC [Concomitant]
  8. ACE INHIBITOR (ANGIOTENSIN-CONVERTING ENZYME INHIBITORS) [Concomitant]
  9. MOVERGAN (SELEGILINE HYDROCHLORIDE) [Concomitant]
  10. FLOMAX [Concomitant]
  11. ACIPHEX [Concomitant]
  12. PERCOCET [Concomitant]
  13. ZOFRAN [Concomitant]
  14. DECADRON [Concomitant]
  15. BENADRYL [Concomitant]

REACTIONS (3)
  - ERYTHEMA [None]
  - EYELID OEDEMA [None]
  - FLUSHING [None]
